FAERS Safety Report 5487630-3 (Version None)
Quarter: 2007Q4

REPORT INFORMATION
  Report Type: 
  Country: None (occurrence: None)
  Receive Date: 20071012
  Receipt Date: 20071012
  Transmission Date: 20080405
  Serious: No
  Sender: FDA-Public Use
  Company Number: None

PATIENT
  Sex: Female
  Weight: 65.8 kg

DRUGS (8)
  1. TEMOZOLOMIDE [Suspect]
     Dosage: 5460 MG
  2. BACTRIM DS [Concomitant]
  3. DEXAMETHASONE 0.5MG TAB [Concomitant]
  4. HYDROCHLOROTHIAZIDE [Concomitant]
  5. KEPPRA [Concomitant]
  6. LEXAPRO [Concomitant]
  7. LISINOPRIL [Concomitant]
  8. PEPCID [Concomitant]

REACTIONS (3)
  - CD4 LYMPHOCYTES DECREASED [None]
  - LYMPHOCYTE COUNT ABNORMAL [None]
  - LYMPHOCYTE COUNT DECREASED [None]
